FAERS Safety Report 10790547 (Version 2)
Quarter: 2015Q1

REPORT INFORMATION
  Report Type: Spontaneous
  Country: US (occurrence: US)
  Receive Date: 20150212
  Receipt Date: 20150212
  Transmission Date: 20150721
  Serious: Yes (Hospitalization)
  Sender: FDA-Public Use
  Company Number: US-GLAXOSMITHKLINE-US2015GSK018263

PATIENT
  Age: 65 Year
  Sex: Female

DRUGS (4)
  1. LOVAZA [Suspect]
     Active Substance: OMEGA-3-ACID ETHYL ESTERS
     Indication: BLOOD CHOLESTEROL ABNORMAL
     Dosage: 2000 MG, BID
     Route: 048
  2. FLUTICASONE NASAL SPRAY [Concomitant]
     Active Substance: FLUTICASONE\FLUTICASONE PROPIONATE
  3. PROMETHAZINE [Concomitant]
     Active Substance: PROMETHAZINE\PROMETHAZINE HYDROCHLORIDE
  4. LOVAZA [Suspect]
     Active Substance: OMEGA-3-ACID ETHYL ESTERS
     Indication: MUSCULAR WEAKNESS
     Dosage: 1000 MG, BID
     Route: 048

REACTIONS (12)
  - Fall [Recovered/Resolved]
  - Dizziness [Recovered/Resolved]
  - Injury [Recovering/Resolving]
  - Asthenia [Not Recovered/Not Resolved]
  - Somnolence [Recovered/Resolved]
  - Exposure to violent event [Recovering/Resolving]
  - Head injury [Recovered/Resolved]
  - Overdose [Unknown]
  - Mobility decreased [Not Recovered/Not Resolved]
  - Sluggishness [Recovered/Resolved]
  - Arthropathy [Unknown]
  - Wheelchair user [Not Recovered/Not Resolved]

NARRATIVE: CASE EVENT DATE: 201412
